FAERS Safety Report 7957438-5 (Version None)
Quarter: 2011Q4

REPORT INFORMATION
  Report Type: 
  Country: None (occurrence: None)
  Receive Date: 20111205
  Receipt Date: 20111129
  Transmission Date: 20120403
  Serious: Yes (Other)
  Sender: FDA-Public Use
  Company Number: US-PFIZER INC-2011291516

PATIENT
  Sex: Female
  Weight: 116.1 kg

DRUGS (14)
  1. ZANTAC [Concomitant]
     Dosage: 150 MG, 2X/DAY
  2. PRAMIPEXOLE [Concomitant]
     Dosage: 0.25 MG, 1X/DAY
  3. CLARITIN [Concomitant]
     Dosage: 10 MG, 1X/DAY
  4. LYRICA [Suspect]
     Indication: FIBROMYALGIA
     Dosage: 75MG TWO TIMES DURING THE DAY+50MG ONCE AT NIGHT
     Route: 048
     Dates: start: 20090101
  5. TOPAMAX [Concomitant]
     Dosage: 50 MG, 2X/DAY
  6. BENADRYL [Concomitant]
     Dosage: 25 MG, 1X/DAY
  7. NEXIUM [Concomitant]
     Dosage: 40 MG, 2X/DAY
  8. FOLIC ACID [Concomitant]
     Dosage: 1 MG, 2X/DAY
  9. PREDNISONE [Concomitant]
     Dosage: 5 MG, AS NEEDED
  10. BACLOFEN [Concomitant]
     Dosage: 10 MG, AS NEEDED
  11. METHOTREXATE [Concomitant]
     Dosage: ONCE A WEEK
     Route: 058
  12. CALCIUM [Concomitant]
     Dosage: 1200 MG, 1X/DAY
  13. CYMBALTA [Concomitant]
     Dosage: 60 MG, 1X/DAY
  14. VITAMIN D [Concomitant]
     Dosage: 1000 IU, 2X/DAY

REACTIONS (1)
  - HYPERTENSION [None]
